FAERS Safety Report 7744765 (Version 17)
Quarter: 2013Q2

REPORT INFORMATION
  Report Type: Spontaneous
  Country: FR (occurrence: FR)
  Receive Date: 20101230
  Receipt Date: 20130516
  Transmission Date: 20140414
  Serious: Yes (Other)
  Sender: FDA-Public Use
  Company Number: FR-PFIZER INC-2010179435

PATIENT
  Age: 45 Year
  Sex: Female
  Weight: 71 kg

DRUGS (16)
  1. CHAMPIX [Suspect]
     Indication: SMOKING CESSATION THERAPY
     Dosage: 0.5 MG, 1X/DAY
     Route: 048
     Dates: start: 20100718, end: 201007
  2. CHAMPIX [Suspect]
     Dosage: 1 MG, 2X/DAY
     Dates: start: 201007, end: 20100809
  3. ABUFENE [Concomitant]
     Dosage: 400 MG
     Dates: start: 20100804
  4. NAFTIDROFURYL [Concomitant]
     Dosage: 200 MG
     Dates: start: 20100129
  5. KARDEGIC [Concomitant]
     Dosage: 75 MG
     Dates: start: 20100129
  6. PLAVIX [Concomitant]
     Dosage: 75 MG TABLET
     Dates: start: 20100129
  7. LEVOTHYROX [Concomitant]
     Dosage: 75 ?G
     Dates: start: 20100129
  8. JANUVIA [Concomitant]
     Dosage: 100 MG TABLET
     Dates: start: 20100129
  9. LANTUS [Concomitant]
     Dosage: 100 IU/ML
     Dates: start: 20100129
  10. NOVORAPID [Concomitant]
     Dosage: 100 IU/ML
     Dates: start: 20100129
  11. TARDYFERON [Concomitant]
     Dosage: 80 MG
     Dates: start: 20100129
  12. COLOPEG [Concomitant]
     Dosage: UNK
     Dates: start: 20100527
  13. FONGAREX [Concomitant]
     Dosage: 900 MG
     Dates: start: 20100309
  14. FONGAMIL [Concomitant]
     Dosage: UNK
     Dates: start: 20100309
  15. MACROGOL [Concomitant]
     Dosage: 4000
     Dates: start: 20100527
  16. AERIUS [Concomitant]
     Dosage: 5 MG TABLET
     Dates: start: 20100129

REACTIONS (3)
  - Eosinophilic fasciitis [Recovered/Resolved]
  - Myositis [Recovered/Resolved]
  - Scleroedema [Recovered/Resolved]
